FAERS Safety Report 6268752-6 (Version None)
Quarter: 2009Q3

REPORT INFORMATION
  Report Type: 
  Country: None (occurrence: None)
  Receive Date: 20090715
  Receipt Date: 20090708
  Transmission Date: 20100115
  Serious: Yes (Other)
  Sender: FDA-Public Use
  Company Number: CA-JNJFOC-20090600304

PATIENT
  Sex: Female

DRUGS (3)
  1. REMICADE [Suspect]
     Route: 050
  2. REMICADE [Suspect]
     Dosage: AT WEEKS 2 AND 6
     Route: 050
  3. REMICADE [Suspect]
     Indication: PATERNAL DRUGS AFFECTING FOETUS
     Dosage: INITIAL INFUSION
     Route: 050

REACTIONS (2)
  - ABORTION SPONTANEOUS [None]
  - DRUG EXPOSURE DURING PREGNANCY [None]
